FAERS Safety Report 6758940-4 (Version None)
Quarter: 2010Q2

REPORT INFORMATION
  Report Type: 
  Country: None (occurrence: None)
  Receive Date: 20100607
  Receipt Date: 20100505
  Transmission Date: 20101027
  Serious: No
  Sender: FDA-Public Use
  Company Number: US-BAYER-201015247BCC

PATIENT
  Age: 66 Year
  Sex: Male
  Weight: 79 kg

DRUGS (4)
  1. ALEVE (CAPLET) [Suspect]
     Indication: PAIN
     Dosage: TOTAL DAILY DOSE: 440 MG  UNIT DOSE: 220 MG
     Route: 048
     Dates: start: 20100501
  2. FLEXURAL [Concomitant]
  3. EXTRA STRENGTH TYLENOL [Concomitant]
  4. TYLENOL PM [Concomitant]

REACTIONS (1)
  - CONSTIPATION [None]
